FAERS Safety Report 17873740 (Version 1)
Quarter: 2020Q2

REPORT INFORMATION
  Report Type: Spontaneous
  Country: US (occurrence: US)
  Receive Date: 20200609
  Receipt Date: 20200609
  Transmission Date: 20200714
  Serious: Yes (Other)
  Sender: FDA-Public Use
  Company Number: US-PACIRA-202000198

PATIENT

DRUGS (1)
  1. EXPAREL [Suspect]
     Active Substance: BUPIVACAINE
     Indication: TRANSVERSUS ABDOMINIS PLANE BLOCK
     Dosage: UNKNOWN
     Route: 065

REACTIONS (1)
  - Procedural complication [Unknown]
